FAERS Safety Report 5076942-3 (Version None)
Quarter: 2006Q3

REPORT INFORMATION
  Report Type: 
  Country: None (occurrence: None)
  Receive Date: 20060807
  Receipt Date: 20060725
  Transmission Date: 20061208
  Serious: Yes (Death, Other)
  Sender: FDA-Public Use
  Company Number: US200607004594

PATIENT
  Sex: Male

DRUGS (2)
  1. FORTEO [Suspect]
     Indication: OSTEOPOROSIS
  2. FORTEO PEN (FORTEO PEN) PEM, DISPOSABLE [Concomitant]

REACTIONS (1)
  - CARDIAC DISORDER [None]
